FAERS Safety Report 20967445 (Version 1)
Quarter: 2022Q2

REPORT INFORMATION
  Report Type: Spontaneous
  Country: US (occurrence: None)
  Receive Date: 20220616
  Receipt Date: 20220616
  Transmission Date: 20220720
  Serious: Yes (Hospitalization, Disabling, Other)
  Sender: FDA-Public Use
  Company Number: None

PATIENT
  Age: 41 Year
  Sex: Male
  Weight: 63.9 kg

DRUGS (8)
  1. PREDNISONE [Suspect]
     Active Substance: PREDNISONE
     Indication: Sudden hearing loss
     Dosage: FREQUENCY : DAILY;?
     Route: 048
     Dates: start: 20220527, end: 20220610
  2. PREDNISONE [Suspect]
     Active Substance: PREDNISONE
     Indication: Ear inflammation
  3. LISINOPRIL [Concomitant]
     Active Substance: LISINOPRIL
  4. ZZZQUIL NIGHTTIME SLEEP-AID [Concomitant]
     Active Substance: DIPHENHYDRAMINE HYDROCHLORIDE
  5. VITAMIN C [Concomitant]
     Active Substance: ASCORBIC ACID
  6. Multivatamin [Concomitant]
  7. FIBER [Concomitant]
     Active Substance: PSYLLIUM HUSK
  8. FISH OIL [Concomitant]
     Active Substance: FISH OIL

REACTIONS (6)
  - Panic attack [None]
  - Anxiety [None]
  - Blood pressure increased [None]
  - Palpitations [None]
  - Tremor [None]
  - Blood lactic acid increased [None]

NARRATIVE: CASE EVENT DATE: 20220611
